FAERS Safety Report 7988660-X (Version None)
Quarter: 2011Q4

REPORT INFORMATION
  Report Type: 
  Country: None (occurrence: None)
  Receive Date: 20111218
  Receipt Date: 20111205
  Transmission Date: 20120403
  Serious: Yes (Hospitalization, Other)
  Sender: FDA-Public Use
  Company Number: US-ELI_LILLY_AND_COMPANY-US201108005250

PATIENT
  Sex: Female

DRUGS (5)
  1. CYMBALTA [Suspect]
     Indication: FIBROMYALGIA
     Dosage: 30 MG, QD
     Route: 048
     Dates: start: 20110630, end: 20110703
  2. ACTONEL [Concomitant]
  3. HYDROCODONE BITARTRATE [Concomitant]
  4. LEVOXYL [Concomitant]
  5. VITAMIN D [Concomitant]

REACTIONS (4)
  - DIPLOPIA [None]
  - PANIC ATTACK [None]
  - DYSPNOEA [None]
  - VISUAL ACUITY REDUCED [None]
